FAERS Safety Report 5345372-9 (Version None)
Quarter: 2007Q2

REPORT INFORMATION
  Report Type: 
  Country: None (occurrence: None)
  Receive Date: 20070605
  Receipt Date: 20070525
  Transmission Date: 20071010
  Serious: Yes (Other)
  Sender: FDA-Public Use
  Company Number: PHBS2007JP08708

PATIENT
  Age: 73 Year
  Sex: Female

DRUGS (4)
  1. LEVOFLOXACIN [Suspect]
     Dates: start: 20070512
  2. EUGLUCON [Concomitant]
     Dosage: 10 MG, UNK
     Route: 048
  3. DIOVAN [Suspect]
     Indication: HYPERTENSION
     Dosage: 160 MG/DAY
     Route: 048
  4. ASPIRIN [Concomitant]
     Dosage: 100 MG, UNK
     Route: 048

REACTIONS (2)
  - HYPOGLYCAEMIA [None]
  - LOSS OF CONSCIOUSNESS [None]
